FAERS Safety Report 10024409 (Version 1)
Quarter: 2014Q1

REPORT INFORMATION
  Report Type: Spontaneous
  Country: US (occurrence: None)
  Receive Date: 20140314
  Receipt Date: 20140314
  Transmission Date: 20141002
  Serious: Yes (Other)
  Sender: FDA-Public Use
  Company Number: FK201400754

PATIENT
  Sex: 0

DRUGS (3)
  1. FLUOROURACIL INJECTION, USP (FLUOROURACIL) (FLUOROURACIL) [Suspect]
     Indication: SMALL INTESTINE CARCINOMA METASTATIC
  2. OXALIPLATIN (OXALIPLATIN) [Concomitant]
  3. AVASTIN (BEVACIZUMAB) [Concomitant]

REACTIONS (4)
  - Neuropathy peripheral [None]
  - Fatigue [None]
  - Pleural effusion [None]
  - Pain [None]
